FAERS Safety Report 7265147-3 (Version None)
Quarter: 2011Q1

REPORT INFORMATION
  Report Type: 
  Country: None (occurrence: None)
  Receive Date: 20110131
  Receipt Date: 20110118
  Transmission Date: 20110831
  Serious: Yes (Other)
  Sender: FDA-Public Use
  Company Number: PHHY2011AR03945

PATIENT
  Sex: Female

DRUGS (3)
  1. RASILEZ [Suspect]
     Indication: HYPERTENSION
     Dosage: 150 MG, (1 TABLET DAILY)
     Dates: end: 20110117
  2. RASILEZ [Suspect]
     Dosage: 300 MG, UNK
     Dates: start: 20110118
  3. LOSACOR [Concomitant]

REACTIONS (4)
  - APATHY [None]
  - BLOOD PRESSURE INCREASED [None]
  - HEADACHE [None]
  - ASTHENIA [None]
